FAERS Safety Report 12595722 (Version 1)
Quarter: 2016Q3

REPORT INFORMATION
  Report Type: Report from Study
  Country: US (occurrence: US)
  Receive Date: 20160726
  Receipt Date: 20160726
  Transmission Date: 20161109
  Serious: No
  Sender: FDA-Public Use
  Company Number: US-AMGEN-USASL2016027245

PATIENT
  Age: 62 Year
  Sex: Male

DRUGS (2)
  1. KYPROLIS [Suspect]
     Active Substance: CARFILZOMIB
     Indication: PRODUCT USED FOR UNKNOWN INDICATION
     Dosage: 27 MG/M2 2 TIMES/WK
     Route: 065
  2. KYPROLIS [Suspect]
     Active Substance: CARFILZOMIB
     Dosage: 36 MG/M2, QWK
     Route: 065

REACTIONS (2)
  - Blood potassium decreased [Unknown]
  - Nasopharyngitis [Unknown]
